FAERS Safety Report 9310173 (Version 1)
Quarter: 2013Q2

REPORT INFORMATION
  Report Type: Spontaneous
  Country: US (occurrence: US)
  Receive Date: 20130527
  Receipt Date: 20130527
  Transmission Date: 20140414
  Serious: No
  Sender: FDA-Public Use
  Company Number: US-009507513-1305USA014782

PATIENT
  Sex: Male

DRUGS (9)
  1. VICTRELIS [Suspect]
     Dosage: 4 DF, TID
  2. REBETOL [Suspect]
     Dosage: 4 DF/ DAY TWO IN AM TWO IN EVENING
  3. REBETOL [Suspect]
     Dosage: UNK
  4. PEGASYS [Suspect]
     Dosage: 180 MICROGRAM/M
  5. ENALAPRIL MALEATE [Concomitant]
     Dosage: 2.5 MG
  6. CRESTOR [Concomitant]
     Dosage: 20 MG
  7. LEVOTHYROXINE SODIUM [Concomitant]
     Dosage: 200MCG
  8. CHLORTHALIDONE [Concomitant]
     Dosage: 25MG
  9. ZOFRAN [Concomitant]
     Dosage: 4MG

REACTIONS (2)
  - Malaise [Unknown]
  - Rash [Unknown]
